FAERS Safety Report 5578121-X (Version None)
Quarter: 2007Q4

REPORT INFORMATION
  Report Type: 
  Country: None (occurrence: None)
  Receive Date: 20071130
  Receipt Date: 20070722
  Transmission Date: 20080405
  Serious: No
  Sender: FDA-Public Use
  Company Number: US200707005334

PATIENT
  Age: 51 Year
  Sex: Male

DRUGS (6)
  1. BYETTA [Suspect]
     Indication: TYPE 2 DIABETES MELLITUS
     Dosage: 5 UG, 2/D, SUBCUTANEOUS
     Route: 058
     Dates: start: 20070721
  2. METFORMIN HCL [Concomitant]
  3. VYTORIN (EZETIMBIE, SIMVASTATIN) [Concomitant]
  4. GLYBURIDE [Concomitant]
  5. TRICOR [Concomitant]
  6. DRUG USED IN DIABETES [Concomitant]

REACTIONS (2)
  - NAUSEA [None]
  - SALIVARY HYPERSECRETION [None]
